FAERS Safety Report 17244093 (Version 2)
Quarter: 2020Q1

REPORT INFORMATION
  Report Type: Spontaneous
  Country: CH (occurrence: CH)
  Receive Date: 20200107
  Receipt Date: 20200120
  Transmission Date: 20200409
  Serious: Yes (Hospitalization)
  Sender: FDA-Public Use
  Company Number: CH-009507513-1912CHE012638

PATIENT
  Sex: Female

DRUGS (9)
  1. PLAVIX [Suspect]
     Active Substance: CLOPIDOGREL BISULFATE
     Dosage: TICAGRELOR SINCE 19JAN2018, CHANGED TO CLOPIDOGREL, FOLLOWED BY PRASUGREL (EFIENT) SINCE APPROXIMATE
     Dates: start: 2018, end: 2018
  2. CALCIMAGON [Concomitant]
     Active Substance: CALCIUM
     Dosage: UNK
  3. CRESTOR [Suspect]
     Active Substance: ROSUVASTATIN CALCIUM
     Dosage: 5 MILLIGRAM, QD
     Dates: end: 20191030
  4. CRESTOR [Suspect]
     Active Substance: ROSUVASTATIN CALCIUM
     Dosage: 5 MILLIGRAM
     Dates: start: 20191113
  5. BRILIQUE [Suspect]
     Active Substance: TICAGRELOR
     Dosage: TICAGRELOR SINCE 19-JAN-2018, CHANGED TO CLOPIDOGREL, FOLLOWED BY PRASUGREL (EFIENT) SINCE APPROXIMA
     Dates: start: 20180119, end: 2018
  6. CANDESARTAN. [Concomitant]
     Active Substance: CANDESARTAN
     Dosage: UNK
  7. ATOZET [Suspect]
     Active Substance: ATORVASTATIN CALCIUM\EZETIMIBE
     Dosage: 10 MILLIGRAM, QD
     Route: 048
     Dates: start: 20191031, end: 20191112
  8. ASPIRIN. [Suspect]
     Active Substance: ASPIRIN
     Dosage: LONG-TERM, SINCE JANUARY 2018 AT LEAST
     Dates: start: 20180119
  9. EFIENT [Suspect]
     Active Substance: PRASUGREL HYDROCHLORIDE
     Dosage: EFIENT 10 MG/DAY SINCE APPROXIMATELY NOVEMBER 2018, STOPPED LATE JANUARY 2019. PREVIOUSLY TICAGRELOR
     Dates: start: 201811, end: 201901

REACTIONS (4)
  - Dyspnoea [Recovered/Resolved]
  - Epistaxis [Recovered/Resolved]
  - Epistaxis [Recovered/Resolved]
  - Fatigue [Recovered/Resolved]

NARRATIVE: CASE EVENT DATE: 2018
